FAERS Safety Report 16143420 (Version 12)
Quarter: 2022Q2

REPORT INFORMATION
  Report Type: Spontaneous
  Country: US (occurrence: US)
  Receive Date: 20190401
  Receipt Date: 20220620
  Transmission Date: 20220721
  Serious: No
  Sender: FDA-Public Use
  Company Number: US-PFIZER INC-2019134014

PATIENT
  Age: 61 Year
  Sex: Female

DRUGS (2)
  1. ESTRING [Suspect]
     Active Substance: ESTRADIOL
     Indication: Oestrogen deficiency
     Dosage: UNK
     Dates: end: 201903
  2. ESTRING [Suspect]
     Active Substance: ESTRADIOL
     Dosage: 2 MG, EVERY 3 MONTHS

REACTIONS (9)
  - Confusional state [Unknown]
  - Feeling abnormal [Unknown]
  - Nervousness [Unknown]
  - Musculoskeletal discomfort [Unknown]
  - Sluggishness [Not Recovered/Not Resolved]
  - Product complaint [Unknown]
  - Poor quality product administered [Unknown]
  - Intentional product misuse [Unknown]
  - Contraindicated product administered [Unknown]
